FAERS Safety Report 7560760-8 (Version None)
Quarter: 2011Q2

REPORT INFORMATION
  Report Type: 
  Country: None (occurrence: None)
  Receive Date: 20110621
  Receipt Date: 20101013
  Transmission Date: 20111010
  Serious: No
  Sender: FDA-Public Use
  Company Number: US-ASTRAZENECA-2010SE48295

PATIENT
  Age: 88 Year
  Sex: Female

DRUGS (4)
  1. NEXIUM [Concomitant]
  2. ZOCOR [Concomitant]
  3. ATACAND [Suspect]
     Indication: HYPERTENSION
     Route: 048
     Dates: start: 20101001
  4. VITAMIN TAB [Concomitant]

REACTIONS (3)
  - WRONG TECHNIQUE IN DRUG USAGE PROCESS [None]
  - COUGH [None]
  - CHEST PAIN [None]
